FAERS Safety Report 20075276 (Version 1)
Quarter: 2021Q4

REPORT INFORMATION
  Report Type: Spontaneous
  Country: MA (occurrence: MA)
  Receive Date: 20211116
  Receipt Date: 20211116
  Transmission Date: 20220303
  Serious: Yes (Other)
  Sender: FDA-Public Use
  Company Number: MA-MYLANLABS-2021M1083585

PATIENT
  Age: 54 Year
  Sex: Female

DRUGS (1)
  1. DEXAMETHASONE [Suspect]
     Active Substance: DEXAMETHASONE
     Indication: Dexamethasone suppression test
     Dosage: 1 MILLIGRAM
     Route: 065

REACTIONS (5)
  - Acute coronary syndrome [Unknown]
  - Angina pectoris [Unknown]
  - Hypokalaemia [Unknown]
  - Myocardial ischaemia [Unknown]
  - Condition aggravated [Unknown]
